FAERS Safety Report 10136296 (Version 1)
Quarter: 2014Q2

REPORT INFORMATION
  Report Type: Report from Study
  Country: NL (occurrence: NL)
  Receive Date: 20140429
  Receipt Date: 20140429
  Transmission Date: 20141212
  Serious: Yes (Hospitalization)
  Sender: FDA-Public Use
  Company Number: NL-JNJFOC-20140410244

PATIENT
  Age: 78 Year
  Sex: Male
  Weight: 75 kg

DRUGS (9)
  1. ABIRATERONE ACETATE [Suspect]
     Indication: PROSTATE CANCER METASTATIC
     Route: 048
     Dates: start: 20120831, end: 20130911
  2. PANTAZOL [Concomitant]
     Route: 065
  3. ANTAGEL [Concomitant]
     Route: 065
  4. METOCLOPRAMIDE [Concomitant]
     Route: 065
  5. AMLODIPINE [Concomitant]
     Route: 065
  6. VALSARTAN [Concomitant]
     Route: 065
  7. PREDNISONE [Concomitant]
     Route: 065
  8. LEUPRORELIN [Concomitant]
     Route: 065
  9. FENTANYL [Concomitant]
     Route: 065

REACTIONS (4)
  - Urosepsis [Unknown]
  - Prostate cancer [Unknown]
  - Gastrooesophageal reflux disease [Unknown]
  - Abdominal pain [Unknown]
